FAERS Safety Report 16147123 (Version 2)
Quarter: 2019Q2

REPORT INFORMATION
  Report Type: Spontaneous
  Country: JP (occurrence: JP)
  Receive Date: 20190402
  Receipt Date: 20190614
  Transmission Date: 20190711
  Serious: Yes (Hospitalization, Other)
  Sender: FDA-Public Use
  Company Number: JP-CELGENEUS-JPN-20171109088

PATIENT
  Age: 73 Year
  Sex: Male

DRUGS (2)
  1. REVLIMID [Suspect]
     Active Substance: LENALIDOMIDE
     Indication: ADULT T-CELL LYMPHOMA/LEUKAEMIA
     Dosage: 15 MILLIGRAM
     Route: 048
     Dates: start: 20171014, end: 20171023
  2. POTELIGEO [Suspect]
     Active Substance: MOGAMULIZUMAB-KPKC
     Indication: ADULT T-CELL LYMPHOMA/LEUKAEMIA
     Route: 065
     Dates: start: 20170911, end: 20171013

REACTIONS (3)
  - Erythema [Unknown]
  - Toxic epidermal necrolysis [Recovered/Resolved]
  - Autoimmune dermatitis [Unknown]

NARRATIVE: CASE EVENT DATE: 2017
